FAERS Safety Report 5083746-4 (Version None)
Quarter: 2006Q3

REPORT INFORMATION
  Report Type: 
  Country: None (occurrence: None)
  Receive Date: 20060818
  Receipt Date: 20060804
  Transmission Date: 20061208
  Serious: Yes (Hospitalization)
  Sender: FDA-Public Use
  Company Number: CA-ROCHE-458337

PATIENT
  Age: 64 Year
  Sex: Female
  Weight: 71 kg

DRUGS (5)
  1. TOCILIZUMAB [Suspect]
     Indication: RHEUMATOID ARTHRITIS
     Route: 042
     Dates: start: 20050824
  2. BLINDED TOCILIZUMAB [Suspect]
     Indication: RHEUMATOID ARTHRITIS
     Route: 042
  3. METHOTREXATE [Concomitant]
     Dosage: WEEKLY
     Dates: start: 20060121
  4. FOLIC ACID [Concomitant]
     Dates: start: 20051028
  5. CLINDAMYCIN [Suspect]
     Indication: TOOTH INFECTION
     Route: 065
     Dates: start: 20060724, end: 20060728

REACTIONS (11)
  - COSTOVERTEBRAL ANGLE TENDERNESS [None]
  - CULTURE URINE POSITIVE [None]
  - DIARRHOEA [None]
  - IMMUNOSUPPRESSION [None]
  - JAW DISORDER [None]
  - LEUKOCYTOSIS [None]
  - NAUSEA [None]
  - PYELONEPHRITIS [None]
  - STREPTOCOCCAL INFECTION [None]
  - SWELLING [None]
  - VOMITING [None]
